FAERS Safety Report 4713585-2 (Version None)
Quarter: 2005Q3

REPORT INFORMATION
  Report Type: 
  Country: None (occurrence: None)
  Receive Date: 20050711
  Receipt Date: 20050627
  Transmission Date: 20060218
  Serious: Yes (Other)
  Sender: FDA-Public Use
  Company Number: 200510333BNE

PATIENT
  Age: 64 Year
  Sex: Male
  Weight: 88 kg

DRUGS (1)
  1. LEVITRA [Suspect]
     Indication: ERECTILE DYSFUNCTION
     Dosage: ONCE
     Dates: start: 20050408

REACTIONS (4)
  - BLINDNESS TRANSIENT [None]
  - EYE PAIN [None]
  - HEADACHE [None]
  - PHOTOPSIA [None]
